FAERS Safety Report 14586981 (Version 2)
Quarter: 2018Q1

REPORT INFORMATION
  Report Type: Report from Study
  Country: US (occurrence: US)
  Receive Date: 20180301
  Receipt Date: 20180312
  Transmission Date: 20180509
  Serious: Yes (Hospitalization, Other)
  Sender: FDA-Public Use
  Company Number: US-TESARO, INC-US-2018TSO00825

PATIENT

DRUGS (2)
  1. LEVOFLOXACIN. [Concomitant]
     Active Substance: LEVOFLOXACIN
     Indication: PRODUCT USED FOR UNKNOWN INDICATION
     Dosage: UNK
     Route: 065
  2. ZEJULA [Suspect]
     Active Substance: NIRAPARIB
     Indication: OVARIAN CANCER
     Dosage: 300 MG, QD
     Route: 048
     Dates: start: 20180206, end: 20180219

REACTIONS (9)
  - Constipation [Unknown]
  - Platelet count decreased [Unknown]
  - Erythema [Unknown]
  - Mouth haemorrhage [Unknown]
  - Vomiting [Recovered/Resolved]
  - Epistaxis [Unknown]
  - Dehydration [Unknown]
  - Oropharyngeal pain [Unknown]
  - Dry mouth [Unknown]
